FAERS Safety Report 6604862-9 (Version None)
Quarter: 2010Q1

REPORT INFORMATION
  Report Type: 
  Country: None (occurrence: None)
  Receive Date: 20100226
  Receipt Date: 20100222
  Transmission Date: 20100710
  Serious: Yes (Other)
  Sender: FDA-Public Use
  Company Number: A0845450A

PATIENT
  Age: 38 Year
  Sex: Male

DRUGS (4)
  1. SUMATRIPTAN SUCCINATE [Suspect]
     Indication: DRUG USE FOR UNKNOWN INDICATION
     Route: 042
     Dates: start: 20100219, end: 20100219
  2. IMITREX [Suspect]
     Indication: MIGRAINE
     Dosage: 6MG SINGLE DOSE
     Route: 042
     Dates: start: 20100219, end: 20100219
  3. ANTIBIOTICS [Concomitant]
  4. HYDROMORPHONE HYDROCHLORIDE [Concomitant]
     Indication: PAIN

REACTIONS (1)
  - INCORRECT ROUTE OF DRUG ADMINISTRATION [None]
